FAERS Safety Report 8004735-3 (Version None)
Quarter: 2011Q4

REPORT INFORMATION
  Report Type: 
  Country: None (occurrence: None)
  Receive Date: 20111223
  Receipt Date: 20111215
  Transmission Date: 20120403
  Serious: Yes (Disabling, Other)
  Sender: FDA-Public Use
  Company Number: JP-JNJFOC-20110410049

PATIENT
  Sex: Male

DRUGS (13)
  1. THIOPENTAL SODIUM [Suspect]
     Indication: CONVULSION
     Route: 065
     Dates: start: 20110409, end: 20110713
  2. TOPIRAMATE [Suspect]
     Route: 048
     Dates: start: 20110412, end: 20110417
  3. PHENOBARBITAL TAB [Suspect]
     Route: 048
     Dates: start: 20110411, end: 20110415
  4. PHENOBARBITAL TAB [Suspect]
     Indication: CONVULSION
     Route: 048
     Dates: start: 20110407, end: 20110410
  5. PHENYTOIN [Suspect]
     Indication: CONVULSION
     Route: 048
     Dates: start: 20110411, end: 20110705
  6. LUPIAL [Suspect]
     Indication: CONVULSION
     Route: 054
     Dates: start: 20110404, end: 20110407
  7. VALPROIC ACID [Concomitant]
     Route: 048
     Dates: start: 20110411, end: 20110414
  8. MIDAZOLAM HCL [Suspect]
     Route: 065
     Dates: start: 20110404, end: 20110404
  9. MIDAZOLAM HCL [Suspect]
     Indication: CONVULSION
     Route: 065
     Dates: start: 20110405
  10. VALPROIC ACID [Concomitant]
     Indication: PRODUCT USED FOR UNKNOWN INDICATION
     Route: 048
     Dates: start: 20110415, end: 20110415
  11. TOPIRAMATE [Suspect]
     Indication: CONVULSION
     Route: 048
     Dates: start: 20110412, end: 20110417
  12. TOPIRAMATE [Suspect]
     Route: 048
     Dates: start: 20110418
  13. TOPIRAMATE [Suspect]
     Indication: EPILEPSY
     Route: 048
     Dates: start: 20110418

REACTIONS (2)
  - DRUG RASH WITH EOSINOPHILIA AND SYSTEMIC SYMPTOMS [None]
  - RHABDOMYOLYSIS [None]
